FAERS Safety Report 22062274 (Version 1)
Quarter: 2023Q1

REPORT INFORMATION
  Report Type: Spontaneous
  Country: US (occurrence: US)
  Receive Date: 20230305
  Receipt Date: 20230305
  Transmission Date: 20230418
  Serious: No
  Sender: FDA-Public Use
  Company Number: US-Teikoku Pharma USA-TPU2023-00065

PATIENT
  Age: 61 Year
  Sex: Female

DRUGS (2)
  1. LIDODERM [Suspect]
     Active Substance: LIDOCAINE
     Indication: Back pain
     Route: 061
     Dates: start: 20230205
  2. LIDODERM [Suspect]
     Active Substance: LIDOCAINE
     Route: 061

REACTIONS (1)
  - Expired product administered [Unknown]

NARRATIVE: CASE EVENT DATE: 20230205
